FAERS Safety Report 16927745 (Version 2)
Quarter: 2020Q3

REPORT INFORMATION
  Report Type: Report from Study
  Country: BR (occurrence: BR)
  Receive Date: 20191016
  Receipt Date: 20200915
  Transmission Date: 20201102
  Serious: Yes (Hospitalization)
  Sender: FDA-Public Use
  Company Number: PHHO2019BR007958

PATIENT
  Age: 40 Year
  Sex: Male
  Weight: 88.8 kg

DRUGS (32)
  1. MYCOPHENOLATE MOFETIL. [Suspect]
     Active Substance: MYCOPHENOLATE MOFETIL
     Dosage: 500 MG BID
     Route: 048
     Dates: start: 20190731
  2. TACROLIMUS. [Suspect]
     Active Substance: TACROLIMUS
     Indication: RENAL TRANSPLANT
     Dosage: 8 MG, BID
     Route: 048
     Dates: start: 20190727
  3. DIPYRONE [Concomitant]
     Active Substance: DIPYRONE
     Indication: RENAL TRANSPLANT
     Dosage: UNK
     Route: 065
     Dates: start: 20190726, end: 20190726
  4. LIDOCAINE. [Concomitant]
     Active Substance: LIDOCAINE
     Indication: RENAL TRANSPLANT
     Dosage: UNK
     Route: 065
     Dates: start: 20190726, end: 20190726
  5. HYDROXYZINE [Concomitant]
     Active Substance: HYDROXYZINE HYDROCHLORIDE
     Indication: TREMOR
     Dosage: UNK
     Route: 065
     Dates: start: 20190728, end: 20190730
  6. CISATRACURIUM. [Concomitant]
     Active Substance: CISATRACURIUM
     Indication: RENAL TRANSPLANT
     Dosage: UNK
     Route: 065
     Dates: start: 20190726, end: 20190726
  7. BACTRIM [Concomitant]
     Active Substance: SULFAMETHOXAZOLE\TRIMETHOPRIM
     Indication: PROPHYLAXIS
     Dosage: UNK
     Route: 065
     Dates: start: 20190727
  8. FUROSEMIDE. [Concomitant]
     Active Substance: FUROSEMIDE
     Indication: RENAL TRANSPLANT
     Dosage: UNK
     Route: 065
     Dates: start: 20190726, end: 20190726
  9. CEFAZOLIN [Concomitant]
     Active Substance: CEFAZOLIN
     Indication: PROPHYLAXIS
     Dosage: UNK
     Route: 065
     Dates: start: 20190726, end: 20190726
  10. RANITIDINE. [Concomitant]
     Active Substance: RANITIDINE
     Indication: RENAL TRANSPLANT
     Dosage: UNK
     Route: 065
     Dates: start: 20190726, end: 20190726
  11. NIPRIDE [Concomitant]
     Active Substance: SODIUM NITROPRUSSIDE
     Indication: HYPERTENSION
     Dosage: UNK
     Route: 065
     Dates: start: 20190726, end: 20190726
  12. LUFTAL [Concomitant]
     Active Substance: DIMETHICONE
     Indication: CONSTIPATION
     Dosage: UNK
     Route: 065
     Dates: start: 20190727, end: 20190727
  13. AMLODIPINE [Concomitant]
     Active Substance: AMLODIPINE BESYLATE
     Indication: HYPERTENSION
     Dosage: UNK
     Route: 065
     Dates: start: 20190727, end: 20190729
  14. MYCOPHENOLATE MOFETIL. [Suspect]
     Active Substance: MYCOPHENOLATE MOFETIL
     Indication: RENAL TRANSPLANT
     Dosage: 1 G, BID
     Route: 048
     Dates: start: 20190727, end: 20190730
  15. MYCOPHENOLATE MOFETIL. [Suspect]
     Active Substance: MYCOPHENOLATE MOFETIL
     Dosage: 1 G, BID
     Route: 048
     Dates: start: 20190813
  16. PREDNISONE. [Concomitant]
     Active Substance: PREDNISONE
     Indication: PROPHYLAXIS
     Dosage: UNK
     Route: 065
     Dates: start: 20190727, end: 20190801
  17. ATENOLOL. [Concomitant]
     Active Substance: ATENOLOL
     Indication: HYPERTENSION
     Dosage: UNK
     Route: 065
     Dates: start: 20180101, end: 20191004
  18. METHYLPREDNISOLONE. [Concomitant]
     Active Substance: METHYLPREDNISOLONE
     Indication: PROPHYLAXIS
     Dosage: UNK
     Route: 065
     Dates: start: 20190726, end: 20190726
  19. ONDANSETRON [Concomitant]
     Active Substance: ONDANSETRON
     Indication: RENAL TRANSPLANT
     Dosage: UNK
     Route: 065
     Dates: start: 20190726, end: 20190726
  20. THYMOGLOBULIN [Concomitant]
     Active Substance: LAPINE T-LYMPHOCYTE IMMUNE GLOBULIN
     Indication: PROPHYLAXIS
     Dosage: UNK
     Route: 065
     Dates: start: 20190726, end: 20190726
  21. MORPHINE [Concomitant]
     Active Substance: MORPHINE
     Indication: RENAL TRANSPLANT
     Dosage: UNK
     Route: 065
     Dates: start: 20190726, end: 20190726
  22. PROPOFOL. [Concomitant]
     Active Substance: PROPOFOL
     Indication: RENAL TRANSPLANT
     Dosage: UNK
     Route: 065
     Dates: start: 20190726, end: 20190726
  23. PREDNISONE. [Concomitant]
     Active Substance: PREDNISONE
     Dosage: UNK
     Route: 065
     Dates: start: 20190802, end: 20190809
  24. FUROSEMIDE. [Concomitant]
     Active Substance: FUROSEMIDE
     Indication: HYPERTENSION
     Dosage: UNK
     Route: 065
     Dates: start: 20190727, end: 20190727
  25. CEFAZOLIN [Concomitant]
     Active Substance: CEFAZOLIN
     Dosage: UNK
     Route: 065
     Dates: start: 20190727, end: 20190727
  26. RANITIDINE. [Concomitant]
     Active Substance: RANITIDINE
     Indication: PROPHYLAXIS
     Dosage: UNK
     Route: 065
     Dates: start: 20190727
  27. BENADRYL [Concomitant]
     Active Substance: DIPHENHYDRAMINE HYDROCHLORIDE
     Indication: TREMOR
     Dosage: UNK
     Route: 065
     Dates: start: 20190726, end: 20190726
  28. AMLODIPINE [Concomitant]
     Active Substance: AMLODIPINE BESYLATE
     Dosage: UNK
     Route: 065
     Dates: start: 20190730, end: 20190805
  29. FENTANYL. [Concomitant]
     Active Substance: FENTANYL
     Indication: RENAL TRANSPLANT
     Dosage: UNK
     Route: 065
     Dates: start: 20190726, end: 20190726
  30. MANITOL [Concomitant]
     Active Substance: MANNITOL
     Indication: RENAL TRANSPLANT
     Dosage: UNK
     Route: 065
     Dates: start: 20190726, end: 20190726
  31. HYDROCORTISONE. [Concomitant]
     Active Substance: HYDROCORTISONE
     Indication: PROPHYLAXIS
     Dosage: UNK
     Route: 065
     Dates: start: 20190726, end: 20190726
  32. CLONIDINE. [Concomitant]
     Active Substance: CLONIDINE
     Indication: HYPERTENSION
     Dosage: UNK
     Route: 065
     Dates: start: 20190727, end: 20190727

REACTIONS (1)
  - Diarrhoea [Recovered/Resolved]

NARRATIVE: CASE EVENT DATE: 20190728
